FAERS Safety Report 9418041 (Version 3)
Quarter: 2013Q3

REPORT INFORMATION
  Report Type: Spontaneous
  Country: US (occurrence: US)
  Receive Date: 20130724
  Receipt Date: 20130822
  Transmission Date: 20140515
  Serious: Yes (Death, Hospitalization, Other)
  Sender: FDA-Public Use
  Company Number: US-UCBSA-092004

PATIENT
  Age: 56 Year
  Sex: Female
  Weight: 101.6 kg

DRUGS (14)
  1. CIMZIA [Suspect]
     Indication: RHEUMATOID ARTHRITIS
     Dosage: DOSE: 400 MG AT 0,2,4 WEEKS
     Route: 058
     Dates: start: 20130606, end: 20130624
  2. ADVAIR DISKUS [Concomitant]
     Indication: ASTHMA
     Dosage: 500 MCG / 50 MCG
     Dates: start: 200506, end: 20130624
  3. TYLENOL # 4 [Concomitant]
     Indication: PAIN
     Dosage: 2 TABS PER DAY; UNKNOWN DOSE
     Route: 048
     Dates: start: 2013, end: 20130624
  4. RECLAST [Concomitant]
     Indication: OSTEOPOROSIS
     Dosage: UNKNOWN DOSE
     Route: 042
     Dates: start: 2013, end: 20130624
  5. LOTENSIN [Concomitant]
     Indication: HYPERTENSION
     Route: 048
     Dates: start: 201101, end: 20130624
  6. TRAMADOL [Concomitant]
     Indication: RHEUMATOID ARTHRITIS
     Dosage: 50 MG, 2 EVERY 6 HOURS
     Route: 048
     Dates: start: 200503, end: 20130624
  7. TRAMADOL [Concomitant]
     Indication: PAIN
     Dosage: 50 MG, 2 EVERY 6 HOURS
     Route: 048
     Dates: start: 200503, end: 20130624
  8. VENTOLIN [Concomitant]
     Indication: ASTHMA
     Dosage: 90 MCG/ACT
     Route: 055
     Dates: start: 200506, end: 20130624
  9. PREDNISONE [Concomitant]
     Indication: RHEUMATOID ARTHRITIS
     Dates: start: 199406, end: 20130624
  10. ACETAMINOPHEN [Concomitant]
     Indication: RHEUMATOID ARTHRITIS
     Dosage: 1 EVERY 4 HOURS
     Dates: start: 201301, end: 20130624
  11. LOMOTIL [Concomitant]
     Indication: POUCHITIS
     Dates: start: 200503, end: 20130624
  12. XIBROM [Concomitant]
     Dosage: 1 DROP IN EYE/ DAY
     Dates: start: 201003, end: 20130624
  13. COMBIGAN [Concomitant]
     Dosage: 1 DROP IN EYE - 2/DAY
     Dates: start: 201003, end: 20130624
  14. DUREZOL [Concomitant]
     Dosage: 1 DROP IN EYE - 2 /DAY
     Dates: start: 201003, end: 20130624

REACTIONS (7)
  - Abdominal pain [Fatal]
  - Pyrexia [Fatal]
  - Fatigue [Fatal]
  - Dyspnoea [Fatal]
  - Urine output decreased [Fatal]
  - Agitation [Fatal]
  - Hypotension [Unknown]
